FAERS Safety Report 10737733 (Version 1)
Quarter: 2015Q1

REPORT INFORMATION
  Report Type: Spontaneous
  Country: US (occurrence: US)
  Receive Date: 20150126
  Receipt Date: 20150126
  Transmission Date: 20150721
  Serious: No
  Sender: FDA-Public Use
  Company Number: US-009507513-1501USA009548

PATIENT
  Sex: Female

DRUGS (1)
  1. DR. SCHOLL^S CLEAR AWAY PLANTAR PATCH [Suspect]
     Active Substance: SALICYLIC ACID
     Indication: SKIN PAPILLOMA
     Dosage: UNK, UNKNOWN
     Route: 061
     Dates: start: 20150113

REACTIONS (1)
  - Application site pain [Not Recovered/Not Resolved]

NARRATIVE: CASE EVENT DATE: 201501
